FAERS Safety Report 24453116 (Version 2)
Quarter: 2024Q4

REPORT INFORMATION
  Report Type: Report from Study
  Country: ZA (occurrence: ZA)
  Receive Date: 20241017
  Receipt Date: 20241018
  Transmission Date: 20250114
  Serious: No
  Sender: ROCHE
  Company Number: ZA-ROCHE-3176531

PATIENT
  Age: 60 Year
  Sex: Female

DRUGS (2)
  1. RITUXIMAB [Suspect]
     Active Substance: RITUXIMAB
     Indication: Rheumatoid arthritis
     Route: 041
     Dates: start: 20220323
  2. RITUXIMAB [Suspect]
     Active Substance: RITUXIMAB
     Dosage: ON THE DOSAGE 1000MG X 2 DOSES, 2 WEEKS (14 DAYS) APART (I.E ONE CYCLE) REPEAT 6-MONTHLY?RECEIVED IV
     Route: 041

REACTIONS (2)
  - C-reactive protein increased [Unknown]
  - Off label use [Unknown]

NARRATIVE: CASE EVENT DATE: 20220831
